FAERS Safety Report 21843123 (Version 2)
Quarter: 2023Q1

REPORT INFORMATION
  Report Type: Spontaneous
  Country: US (occurrence: US)
  Receive Date: 20230110
  Receipt Date: 20230309
  Transmission Date: 20230418
  Serious: No
  Sender: FDA-Public Use
  Company Number: US-BRISTOL-MYERS SQUIBB COMPANY-2023-003940

PATIENT
  Age: 73 Year
  Sex: Male
  Weight: 78.83 kg

DRUGS (1)
  1. LENALIDOMIDE [Suspect]
     Active Substance: LENALIDOMIDE
     Indication: Plasma cell myeloma
     Dosage: FREQ: DAILY DAYS 1-28
     Route: 048
     Dates: start: 20210322

REACTIONS (2)
  - COVID-19 [Recovered/Resolved]
  - Feeling abnormal [Unknown]
